FAERS Safety Report 5692888-1 (Version None)
Quarter: 2008Q2

REPORT INFORMATION
  Report Type: 
  Country: None (occurrence: None)
  Receive Date: 20080326
  Receipt Date: 20071203
  Transmission Date: 20081010
  Serious: No
  Sender: FDA-Public Use
  Company Number: US-CVT-070141

PATIENT
  Age: 82 Year
  Sex: Male

DRUGS (12)
  1. RANEXA [Suspect]
     Indication: ANGINA PECTORIS
     Dosage: 500 MG, BID, ORAL ; 500 MG, TID, ORAL ; 1000 MG, BID, ORAL ; 500 MG, BID, ORAL
     Route: 048
     Dates: start: 20060623, end: 20060806
  2. RANEXA [Suspect]
     Indication: ANGINA PECTORIS
     Dosage: 500 MG, BID, ORAL ; 500 MG, TID, ORAL ; 1000 MG, BID, ORAL ; 500 MG, BID, ORAL
     Route: 048
     Dates: start: 20060803, end: 20061005
  3. RANEXA [Suspect]
     Indication: ANGINA PECTORIS
     Dosage: 500 MG, BID, ORAL ; 500 MG, TID, ORAL ; 1000 MG, BID, ORAL ; 500 MG, BID, ORAL
     Route: 048
     Dates: start: 20061006, end: 20070704
  4. RANEXA [Suspect]
     Indication: ANGINA PECTORIS
     Dosage: 500 MG, BID, ORAL ; 500 MG, TID, ORAL ; 1000 MG, BID, ORAL ; 500 MG, BID, ORAL
     Route: 048
     Dates: start: 20070705
  5. ZOCOR [Concomitant]
  6. NORVASC /00972401/ (AMLODIPINE) [Concomitant]
  7. COUMADIN [Concomitant]
  8. ISOSORBIDE (ISOSORBIDE) [Concomitant]
  9. LISINOPRI /00894001/ (LISINOPRIL) [Concomitant]
  10. TOPROL-XL [Concomitant]
  11. MVI (VITAMINS NOS) [Concomitant]
  12. ASCORBIC ACID [Concomitant]

REACTIONS (1)
  - MYOCLONUS [None]
